FAERS Safety Report 10539551 (Version 1)
Quarter: 2014Q4

REPORT INFORMATION
  Report Type: Spontaneous
  Country: US (occurrence: US)
  Receive Date: 20141023
  Receipt Date: 20141023
  Transmission Date: 20150529
  Serious: Yes (Other)
  Sender: FDA-Public Use
  Company Number: US-ALLERGAN-1408175US

PATIENT

DRUGS (1)
  1. COMBIGAN[R] [Suspect]
     Active Substance: BRIMONIDINE TARTRATE\TIMOLOL MALEATE
     Indication: HAEMANGIOMA
     Route: 061

REACTIONS (5)
  - Lethargy [Unknown]
  - Off label use [Unknown]
  - Bradycardia [Unknown]
  - Hypotension [Unknown]
  - Incorrect route of drug administration [Unknown]
